FAERS Safety Report 13936955 (Version 1)
Quarter: 2017Q3

REPORT INFORMATION
  Report Type: Spontaneous
  Country: GB (occurrence: GB)
  Receive Date: 20170905
  Receipt Date: 20170905
  Transmission Date: 20171127
  Serious: Yes (Hospitalization)
  Sender: FDA-Public Use
  Company Number: PHFR2017GB007137

PATIENT
  Age: 31 Year
  Sex: Male

DRUGS (1)
  1. METHOTREXATE. [Suspect]
     Active Substance: METHOTREXATE
     Indication: PSORIASIS
     Dosage: 10 MG, QW GRADUALLY INCREASED DOSE
     Route: 048
     Dates: start: 201705

REACTIONS (3)
  - Pancreatitis acute [Recovered/Resolved]
  - Chest pain [Unknown]
  - Abdominal pain [Unknown]

NARRATIVE: CASE EVENT DATE: 20170728
